FAERS Safety Report 17166002 (Version 1)
Quarter: 2019Q4

REPORT INFORMATION
  Report Type: Report from Study
  Country: AT (occurrence: AT)
  Receive Date: 20191217
  Receipt Date: 20191217
  Transmission Date: 20200122
  Serious: Yes (Death)
  Sender: FDA-Public Use
  Company Number: AT-ELI_LILLY_AND_COMPANY-AT201806011132

PATIENT
  Age: 67 Year
  Sex: Male
  Weight: 65 kg

DRUGS (26)
  1. GEMCITABINE HYDROCHLORIDE. [Suspect]
     Active Substance: GEMCITABINE HYDROCHLORIDE
     Dosage: 1000 MG/M2, UNK
     Route: 065
     Dates: start: 20180822
  2. GEMCITABINE HYDROCHLORIDE. [Suspect]
     Active Substance: GEMCITABINE HYDROCHLORIDE
     Indication: PANCREATIC CARCINOMA
     Dosage: 1000 MG/M2, WEEKLY (1/W)
     Route: 065
     Dates: start: 20180516
  3. GEMCITABINE HYDROCHLORIDE. [Suspect]
     Active Substance: GEMCITABINE HYDROCHLORIDE
     Dosage: 950 MG/M2, UNKNOWN
     Route: 065
     Dates: start: 2018
  4. ABRAXANE [Suspect]
     Active Substance: PACLITAXEL
     Dosage: 125 MG/M2, WEEKLY (1/W)
     Route: 041
     Dates: start: 20180615
  5. ABRAXANE [Suspect]
     Active Substance: PACLITAXEL
     Dosage: 125 UG/M2, UNKNOWN
     Route: 041
     Dates: start: 20181017, end: 20181121
  6. LIXIANA [Concomitant]
     Active Substance: EDOXABAN TOSYLATE
     Indication: DEEP VEIN THROMBOSIS
     Dosage: 1 DOSAGE FORM, DAILY
     Route: 065
     Dates: start: 201807
  7. PASPERTIN [METOCLOPRAMIDE;POLIDOCANOL] [Concomitant]
     Indication: NAUSEA
     Dosage: 3 DOSAGE FORM, DAILY
     Route: 065
  8. GEMCITABINE HYDROCHLORIDE. [Suspect]
     Active Substance: GEMCITABINE HYDROCHLORIDE
     Dosage: 1000 MG/M2, UNKNOWN
     Route: 065
     Dates: start: 20181017
  9. ABRAXANE [Suspect]
     Active Substance: PACLITAXEL
     Dosage: 125 MG/M2, WEEKLY (1/W)
     Route: 041
     Dates: start: 20180713
  10. ABRAXANE [Suspect]
     Active Substance: PACLITAXEL
     Dosage: 125 MG/M2, WEEKLY (1/W)
     Route: 041
     Dates: start: 20180822
  11. ABRAXANE [Suspect]
     Active Substance: PACLITAXEL
     Dosage: 125 MG/M2, UNKNOWN
     Route: 041
     Dates: start: 20180919
  12. ONDASAN [Concomitant]
     Active Substance: ONDANSETRON HYDROCHLORIDE
     Indication: NAUSEA
     Dosage: 16 MG, DAILY
     Route: 065
  13. AMLODIPINE [Concomitant]
     Active Substance: AMLODIPINE BESYLATE
     Dosage: 1 DOSAGE FORM
     Route: 065
  14. MOVCOL [Concomitant]
     Indication: CONSTIPATION
     Dosage: UNK UNK, UNKNOWN
     Route: 065
  15. GEMCITABINE HYDROCHLORIDE. [Suspect]
     Active Substance: GEMCITABINE HYDROCHLORIDE
     Dosage: 1000 MG/M2, UNK
     Route: 065
     Dates: start: 20180713
  16. ABRAXANE [Suspect]
     Active Substance: PACLITAXEL
     Dosage: UNK UNK, UNKNOWN
     Route: 065
     Dates: start: 2018
  17. GEMCITABINE HYDROCHLORIDE. [Suspect]
     Active Substance: GEMCITABINE HYDROCHLORIDE
     Dosage: 950 MG/M2, UNKNOWN
     Route: 065
     Dates: start: 201809
  18. GEMCITABINE HYDROCHLORIDE. [Suspect]
     Active Substance: GEMCITABINE HYDROCHLORIDE
     Dosage: 1000 MG/M2, UNKNOWN
     Route: 065
     Dates: start: 20180919
  19. ABRAXANE [Suspect]
     Active Substance: PACLITAXEL
     Dosage: 109 MG/M2, UNKNOWN
     Route: 041
     Dates: start: 2018
  20. LIXIANA [Concomitant]
     Active Substance: EDOXABAN TOSYLATE
     Indication: NAUSEA
     Dosage: 60 MG, DAILY
     Route: 065
     Dates: start: 20180604
  21. LIXIANA [Concomitant]
     Active Substance: EDOXABAN TOSYLATE
     Indication: THROMBOSIS PROPHYLAXIS
  22. AMLODIPINE [Concomitant]
     Active Substance: AMLODIPINE BESYLATE
     Indication: PRODUCT USED FOR UNKNOWN INDICATION
     Dosage: 10 MG, DAILY
     Route: 065
  23. GEMCITABINE HYDROCHLORIDE. [Suspect]
     Active Substance: GEMCITABINE HYDROCHLORIDE
     Dosage: UNK UNK, UNKNOWN
     Route: 065
     Dates: start: 2018
  24. ABRAXANE [Suspect]
     Active Substance: PACLITAXEL
     Indication: PANCREATIC CARCINOMA
     Dosage: 125 MG/M2, WEEKLY (1/W)
     Route: 041
     Dates: start: 20180516
  25. ABRAXANE [Suspect]
     Active Substance: PACLITAXEL
     Dosage: 109 MG/M2, UNKNOWN
     Route: 041
     Dates: start: 201809
  26. GEMCITABINE HYDROCHLORIDE. [Suspect]
     Active Substance: GEMCITABINE HYDROCHLORIDE
     Dosage: 1000 MG/M2, UNK
     Route: 065
     Dates: start: 20180615

REACTIONS (10)
  - Thrombocytopenia [Fatal]
  - Nausea [Not Recovered/Not Resolved]
  - Anaemia [Fatal]
  - Nausea [Fatal]
  - Hypomagnesaemia [Fatal]
  - Off label use [Unknown]
  - Malignant neoplasm progression [Fatal]
  - Fatigue [Fatal]
  - Polyneuropathy [Fatal]
  - Neutropenia [Fatal]

NARRATIVE: CASE EVENT DATE: 20180524
